FAERS Safety Report 22535195 (Version 1)
Quarter: 2023Q2

REPORT INFORMATION
  Report Type: Spontaneous
  Country: CH (occurrence: None)
  Receive Date: 20230608
  Receipt Date: 20230608
  Transmission Date: 20230722
  Serious: Yes (Hospitalization, Other)
  Sender: FDA-Public Use
  Company Number: 2023A125597

PATIENT
  Age: 59 Year
  Sex: Female

DRUGS (7)
  1. DAPAGLIFLOZIN [Suspect]
     Active Substance: DAPAGLIFLOZIN
     Route: 048
     Dates: start: 2020
  2. METFORMIN HYDROCHLORIDE [Suspect]
     Active Substance: METFORMIN HYDROCHLORIDE
     Dates: end: 202304
  3. JANUMET [Suspect]
     Active Substance: METFORMIN HYDROCHLORIDE\SITAGLIPTIN PHOSPHATE
     Dosage: EVERY 12 HOURS
     Dates: start: 202304
  4. OZEMPIC [Suspect]
     Active Substance: SEMAGLUTIDE
     Dates: start: 2021, end: 202304
  5. SITAGLIPTIN [Concomitant]
     Active Substance: SITAGLIPTIN
     Dates: end: 2021
  6. MICARDIS [Concomitant]
     Active Substance: TELMISARTAN
  7. DAFALGAN [Concomitant]
     Active Substance: ACETAMINOPHEN

REACTIONS (2)
  - Hyperlipasaemia [Recovering/Resolving]
  - Pancreatitis [Recovered/Resolved]

NARRATIVE: CASE EVENT DATE: 20230101
